FAERS Safety Report 9292651 (Version 1)
Quarter: 2013Q2

REPORT INFORMATION
  Report Type: Spontaneous
  Country: US (occurrence: US)
  Receive Date: 20130516
  Receipt Date: 20130516
  Transmission Date: 20140414
  Serious: Yes (Other)
  Sender: FDA-Public Use
  Company Number: US-SANOFI-AVENTIS-2013SA049184

PATIENT
  Sex: 0

DRUGS (2)
  1. PLAVIX [Suspect]
     Dates: start: 200710
  2. ASPIRIN [Suspect]
     Dates: start: 200710

REACTIONS (2)
  - Pneumonia aspiration [Unknown]
  - Gastrointestinal haemorrhage [Unknown]
